FAERS Safety Report 5001845-X (Version None)
Quarter: 2006Q2

REPORT INFORMATION
  Report Type: 
  Country: None (occurrence: None)
  Receive Date: 20060515
  Receipt Date: 20060410
  Transmission Date: 20061013
  Serious: Yes (Death, Hospitalization)
  Sender: FDA-Public Use
  Company Number: 2006EU001120

PATIENT
  Age: 67 Year
  Sex: Male
  Weight: 120 kg

DRUGS (13)
  1. ORBENINE [Suspect]
     Route: 042
     Dates: start: 20060123, end: 20060218
  2. AUGMENTIN '125' [Suspect]
     Dosage: 1G THREE TIMES PER DAY
     Route: 042
     Dates: start: 20060120, end: 20060123
  3. OFLOCET [Suspect]
     Route: 042
     Dates: start: 20060120, end: 20060218
  4. GENTALLINE [Suspect]
     Dosage: 120MG TWICE PER DAY
     Route: 042
     Dates: start: 20060123, end: 20060127
  5. COLCHIMAX [Concomitant]
  6. ALLOPURINOL [Concomitant]
  7. TAHOR [Concomitant]
  8. RENITEC [Concomitant]
  9. DIGOXIN [Concomitant]
  10. LOGIRENE [Concomitant]
  11. LASILIX [Concomitant]
  12. MOPRAL [Concomitant]
  13. SINTROM [Concomitant]

REACTIONS (6)
  - ASTHENIA [None]
  - CARDIAC ARREST [None]
  - HYPOTENSION [None]
  - MELAENA [None]
  - PANCYTOPENIA [None]
  - POLYURIA [None]
